FAERS Safety Report 8327754-6 (Version None)
Quarter: 2012Q2

REPORT INFORMATION
  Report Type: 
  Country: None (occurrence: None)
  Receive Date: 20120502
  Receipt Date: 20120426
  Transmission Date: 20120825
  Serious: No
  Sender: FDA-Public Use
  Company Number: US-PFIZER INC-2012104749

PATIENT
  Age: 87 Year
  Sex: Male
  Weight: 109 kg

DRUGS (3)
  1. ZITHROMAX [Suspect]
     Dosage: DAILY
     Dates: end: 20120426
  2. ROBITUSSIN PEAK COLD MAXIMUM STRENGTH COUGH PLUS CHEST CONGESTION DM [Suspect]
     Indication: COUGH
     Dosage: TWO TEASPOONS FOUR TIMES A DAY
     Dates: start: 20120401
  3. ZITHROMAX [Suspect]
     Indication: COUGH
     Dosage: FOUR TIMES A DAY
     Dates: start: 20120423

REACTIONS (1)
  - SOMNOLENCE [None]
